FAERS Safety Report 21310215 (Version 1)
Quarter: 2022Q3

REPORT INFORMATION
  Report Type: Spontaneous
  Country: CN (occurrence: CN)
  Receive Date: 20220909
  Receipt Date: 20220909
  Transmission Date: 20221027
  Serious: Yes (Hospitalization)
  Sender: FDA-Public Use
  Company Number: None

PATIENT
  Age: 44 Year
  Sex: Female
  Weight: 75 kg

DRUGS (1)
  1. OZEMPIC [Suspect]
     Active Substance: SEMAGLUTIDE
     Indication: Blood glucose abnormal
     Dosage: 0.5 MG, QW
     Route: 058
     Dates: start: 20220715, end: 20220815

REACTIONS (6)
  - Decreased appetite [Recovering/Resolving]
  - Vomiting [Recovering/Resolving]
  - Fatigue [Recovering/Resolving]
  - Eructation [Recovering/Resolving]
  - Peripheral swelling [Unknown]
  - Pain in extremity [Unknown]

NARRATIVE: CASE EVENT DATE: 20220808
